FAERS Safety Report 18711346 (Version 4)
Quarter: 2021Q1

REPORT INFORMATION
  Report Type: Spontaneous
  Country: US (occurrence: US)
  Receive Date: 20210107
  Receipt Date: 20210108
  Transmission Date: 20210419
  Serious: Yes (Death, Hospitalization)
  Sender: FDA-Public Use
  Company Number: US-CELGENEUS-USA-20210100689

PATIENT
  Age: 77 Year
  Sex: Female
  Weight: 56.75 kg

DRUGS (2)
  1. ABRAXANE [Suspect]
     Active Substance: PACLITAXEL
     Indication: ADENOCARCINOMA PANCREAS
     Dosage: 185 MG
     Route: 065
     Dates: start: 20201111, end: 20201111
  2. GEMCITABINE HYDROCHLORIDE. [Suspect]
     Active Substance: GEMCITABINE HYDROCHLORIDE
     Indication: ADENOCARCINOMA PANCREAS
     Dosage: 1500 MG
     Route: 065
     Dates: start: 20201111, end: 20201111

REACTIONS (4)
  - Adenocarcinoma pancreas [Fatal]
  - Pneumonia [Unknown]
  - Sepsis [Unknown]
  - Ascites [Unknown]

NARRATIVE: CASE EVENT DATE: 20201113
